FAERS Safety Report 9789839 (Version 1)
Quarter: 2013Q4

REPORT INFORMATION
  Report Type: Spontaneous
  Country: US (occurrence: None)
  Receive Date: 20131230
  Receipt Date: 20131230
  Transmission Date: 20140711
  Serious: Yes (Life-Threatening, Hospitalization, Disabling)
  Sender: FDA-Public Use
  Company Number: None

PATIENT
  Age: 52 Year
  Sex: Male
  Weight: 101.61 kg

DRUGS (2)
  1. TESTOSTERONE [Suspect]
     Indication: BLOOD TESTOSTERONE DECREASED
     Dosage: 10ML PER MONTH INTO THE MUSCLE
     Dates: start: 20110228, end: 20111028
  2. TESTOSTERONE [Suspect]
     Indication: BLOOD TESTOSTERONE DECREASED
     Dosage: 1/2 ML MONTHLY INTO THE MUSCLE
     Dates: start: 20111028, end: 20131229

REACTIONS (2)
  - Cardiac disorder [None]
  - Myocardial infarction [None]
